FAERS Safety Report 16163946 (Version 1)
Quarter: 2019Q2

REPORT INFORMATION
  Report Type: Spontaneous
  Country: US (occurrence: US)
  Receive Date: 20190405
  Receipt Date: 20190405
  Transmission Date: 20190711
  Serious: No
  Sender: FDA-Public Use
  Company Number: US-AMREGENT-20190318

PATIENT
  Age: 24 Year
  Sex: Female

DRUGS (1)
  1. HYDROXYPROGESTERONE CAPROATE  INJECTION, USP (0517-1767-01) [Suspect]
     Active Substance: HYDROXYPROGESTERONE CAPROATE
     Dosage: 250 MG
     Route: 030
     Dates: start: 2018, end: 20190219

REACTIONS (3)
  - Skin reaction [Unknown]
  - Pruritus [Unknown]
  - Skin burning sensation [Unknown]

NARRATIVE: CASE EVENT DATE: 20190219
